FAERS Safety Report 6593806-4 (Version None)
Quarter: 2010Q1

REPORT INFORMATION
  Report Type: 
  Country: None (occurrence: None)
  Receive Date: 20100218
  Receipt Date: 20100218
  Transmission Date: 20100710
  Serious: No
  Sender: FDA-Public Use
  Company Number: None

PATIENT
  Age: 53 Year
  Sex: Male
  Weight: 63.5036 kg

DRUGS (1)
  1. ZICAM NASAL GEL [Suspect]
     Indication: NASAL CONGESTION
     Dates: start: 20060101, end: 20070228

REACTIONS (3)
  - DYSGEUSIA [None]
  - HYPOSMIA [None]
  - PRODUCT QUALITY ISSUE [None]
